FAERS Safety Report 8853405 (Version 2)
Quarter: 2012Q4

REPORT INFORMATION
  Report Type: 
  Country: JP (occurrence: JP)
  Receive Date: 20121022
  Receipt Date: 20121030
  Transmission Date: 20130627
  Serious: Yes (Hospitalization)
  Sender: FDA-Public Use
  Company Number: PHHY2012JP093944

PATIENT
  Age: 6 Year
  Sex: Female

DRUGS (1)
  1. DICLOFENAC [Suspect]
     Indication: ABDOMINAL PAIN
     Route: 054

REACTIONS (6)
  - Encephalopathy [Recovered/Resolved]
  - Restlessness [Unknown]
  - Muscle rigidity [Unknown]
  - Altered state of consciousness [Unknown]
  - Hyperammonaemia [Unknown]
  - Drug ineffective [Unknown]
